FAERS Safety Report 5429284-8 (Version None)
Quarter: 2007Q3

REPORT INFORMATION
  Report Type: 
  Country: None (occurrence: None)
  Receive Date: 20070827
  Receipt Date: 20070816
  Transmission Date: 20080115
  Serious: Yes (Other)
  Sender: FDA-Public Use
  Company Number: CAP07000332

PATIENT
  Age: 70 Year
  Sex: Female

DRUGS (7)
  1. ETIDRONATE DISODIUM [Suspect]
     Indication: BONE DISORDER
     Dosage: 1 TABLET, 1 /DAY, ORAL; 1 TABLET, 1 /DAY, ORAL
     Route: 048
     Dates: start: 20070710, end: 20070715
  2. ETIDRONATE DISODIUM [Suspect]
     Indication: BONE DISORDER
     Dosage: 1 TABLET, 1 /DAY, ORAL; 1 TABLET, 1 /DAY, ORAL
     Route: 048
     Dates: start: 20050101
  3. DILTIAZEM [Concomitant]
  4. DIGOXIN [Concomitant]
  5. DOMPERIDONE (DOMPERIDONE) [Concomitant]
  6. ARIMIDEX [Concomitant]
  7. ZOCOR [Concomitant]

REACTIONS (3)
  - BREAST CANCER FEMALE [None]
  - BREAST CYST [None]
  - STOMACH DISCOMFORT [None]
